FAERS Safety Report 6217861-6 (Version None)
Quarter: 2009Q2

REPORT INFORMATION
  Report Type: 
  Country: None (occurrence: None)
  Receive Date: 20090608
  Receipt Date: 20090601
  Transmission Date: 20091009
  Serious: Yes (Death)
  Sender: FDA-Public Use
  Company Number: HR-ROCHE-635587

PATIENT
  Sex: Male

DRUGS (3)
  1. PEGASYS [Suspect]
     Indication: HEPATITIS C
     Dosage: START DATE REPORTED AS MAY 2009.
     Route: 058
  2. HELEX [Concomitant]
  3. APAURIN [Concomitant]

REACTIONS (1)
  - RESPIRATORY FAILURE [None]
